FAERS Safety Report 21173345 (Version 1)
Quarter: 2022Q3

REPORT INFORMATION
  Report Type: Spontaneous
  Country: CN (occurrence: CN)
  Receive Date: 20220804
  Receipt Date: 20220804
  Transmission Date: 20221027
  Serious: No
  Sender: FDA-Public Use
  Company Number: CN-ELI_LILLY_AND_COMPANY-CN202208001830

PATIENT
  Age: 55 Year
  Sex: Male
  Weight: 63 kg

DRUGS (1)
  1. CIALIS [Suspect]
     Active Substance: TADALAFIL
     Indication: Erectile dysfunction
     Dosage: 5 MG, DAILY
     Route: 048
     Dates: start: 20220722, end: 20220723

REACTIONS (4)
  - Discomfort [Recovered/Resolved]
  - Eyelid oedema [Recovering/Resolving]
  - Headache [Recovering/Resolving]
  - Ocular hyperaemia [Recovering/Resolving]

NARRATIVE: CASE EVENT DATE: 20220722
